FAERS Safety Report 5607595-0 (Version None)
Quarter: 2008Q1

REPORT INFORMATION
  Report Type: 
  Country: None (occurrence: None)
  Receive Date: 20080130
  Receipt Date: 20080123
  Transmission Date: 20080703
  Serious: Yes (Hospitalization)
  Sender: FDA-Public Use
  Company Number: PHBS2007JP21291

PATIENT
  Age: 81 Year
  Sex: Male

DRUGS (4)
  1. TEGRETOL [Suspect]
     Indication: EPILEPSY
     Dosage: 900 MG/DAY
     Route: 048
     Dates: start: 19970101
  2. PHENOBAL [Concomitant]
     Indication: EPILEPSY
     Dosage: 60 MG/DAY
     Route: 048
  3. TETRAMIDE [Concomitant]
     Indication: INSOMNIA
     Dosage: 30 MG, UNK
     Route: 048
  4. NITRAZEPAM [Concomitant]
     Indication: INSOMNIA
     Dosage: 10 MG, UNK
     Route: 048

REACTIONS (14)
  - ALANINE AMINOTRANSFERASE INCREASED [None]
  - ASPARTATE AMINOTRANSFERASE INCREASED [None]
  - BLOOD CREATININE INCREASED [None]
  - BLOOD LACTATE DEHYDROGENASE INCREASED [None]
  - BLOOD UREA INCREASED [None]
  - BRADYCARDIA [None]
  - CARDIAC FAILURE [None]
  - GAMMA-GLUTAMYLTRANSFERASE INCREASED [None]
  - HYPERKALAEMIA [None]
  - HYPOTHYROIDISM [None]
  - ISCHAEMIC HEPATITIS [None]
  - LIVER DISORDER [None]
  - MALAISE [None]
  - RENAL FAILURE ACUTE [None]
